FAERS Safety Report 13997779 (Version 1)
Quarter: 2017Q3

REPORT INFORMATION
  Report Type: Not Available
  Country: None (occurrence: US)
  Receive Date: 20170921
  Receipt Date: 20170921
  Transmission Date: 20171128
  Serious: No
  Sender: FDA-Public Use
  Company Number: US-AKORN-68317

PATIENT
  Age: 74 Year
  Sex: Female

DRUGS (1)
  1. TIMOLOL MALEATE OPHTHALMIC SOLUTION [Suspect]
     Active Substance: TIMOLOL MALEATE

REACTIONS (3)
  - Inflammation [None]
  - Swelling [None]
  - Scab [None]
